FAERS Safety Report 8208314-4 (Version None)
Quarter: 2012Q1

REPORT INFORMATION
  Report Type: 
  Country: None (occurrence: None)
  Receive Date: 20120314
  Receipt Date: 20120312
  Transmission Date: 20120608
  Serious: Yes (Death)
  Sender: FDA-Public Use
  Company Number: PHHY2012GT020525

PATIENT
  Age: 70 Year
  Sex: Female

DRUGS (1)
  1. EXELON [Suspect]
     Indication: COGNITIVE DISORDER
     Dosage: 4.6 MG PATCH
     Route: 062

REACTIONS (1)
  - DIABETIC COMPLICATION [None]
